FAERS Safety Report 12628956 (Version 1)
Quarter: 2016Q3

REPORT INFORMATION
  Report Type: Spontaneous
  Country: US (occurrence: None)
  Receive Date: 20160805
  Receipt Date: 20160805
  Transmission Date: 20161109
  Serious: Yes (Hospitalization, Other)
  Sender: FDA-Public Use
  Company Number: None

PATIENT
  Age: 69 Year
  Sex: Male
  Weight: 115.9 kg

DRUGS (3)
  1. METOPROLOL. [Suspect]
     Active Substance: METOPROLOL
     Indication: ATRIAL FIBRILLATION
     Route: 048
     Dates: start: 20151125, end: 20160610
  2. METOPROLOL. [Suspect]
     Active Substance: METOPROLOL
     Indication: LEFT VENTRICULAR FAILURE
     Route: 048
     Dates: start: 20151125, end: 20160610
  3. METOPROLOL. [Suspect]
     Active Substance: METOPROLOL
     Indication: HYPERTENSION
     Route: 048
     Dates: start: 20151125, end: 20160610

REACTIONS (4)
  - Dizziness [None]
  - Bradycardia [None]
  - Syncope [None]
  - Sinus node dysfunction [None]

NARRATIVE: CASE EVENT DATE: 20160602
